FAERS Safety Report 23102254 (Version 3)
Quarter: 2024Q4

REPORT INFORMATION
  Report Type: Spontaneous
  Country: ES (occurrence: ES)
  Receive Date: 20231025
  Receipt Date: 20241016
  Transmission Date: 20250114
  Serious: Yes (Other)
  Sender: AUROBINDO
  Company Number: ES-JNJFOC-20231018026

PATIENT
  Age: 51 Year
  Sex: Male

DRUGS (5)
  1. BORTEZOMIB [Suspect]
     Active Substance: BORTEZOMIB
     Indication: Waldenstrom^s macroglobulinaemia
     Dosage: 6 CYCLICAL
     Route: 065
  2. CYCLOPHOSPHAMIDE [Suspect]
     Active Substance: CYCLOPHOSPHAMIDE
     Indication: Waldenstrom^s macroglobulinaemia
     Dosage: 6 CYCLICAL
     Route: 065
  3. DEXAMETHASONE [Suspect]
     Active Substance: DEXAMETHASONE
     Indication: Waldenstrom^s macroglobulinaemia
     Dosage: 12 CYCLICAL (GIVEN FOR 6 CYCLES - FIRST AND SECOND LINE THERAPY)
     Route: 065
  4. IMBRUVICA [Suspect]
     Active Substance: IBRUTINIB
     Indication: Waldenstrom^s macroglobulinaemia
     Dosage: UNK
     Route: 048
  5. RITUXIMAB [Suspect]
     Active Substance: RITUXIMAB
     Indication: Waldenstrom^s macroglobulinaemia
     Dosage: 12 CYCLICAL (GIVEN FOR 6 CYCLES - FIRST AND SECOND LINE THERAPY)
     Route: 065

REACTIONS (7)
  - Disease progression [Unknown]
  - Herpes simplex reactivation [Recovering/Resolving]
  - Giardiasis [Recovered/Resolved]
  - Malignant syphilis [Recovered/Resolved]
  - Enteritis infectious [Recovered/Resolved]
  - Drug ineffective [Unknown]
  - Product use in unapproved indication [Unknown]
